FAERS Safety Report 6596841-5 (Version None)
Quarter: 2010Q1

REPORT INFORMATION
  Report Type: 
  Country: None (occurrence: None)
  Receive Date: 20100219
  Receipt Date: 20100219
  Transmission Date: 20100710
  Serious: Yes (Other)
  Sender: FDA-Public Use
  Company Number: None

PATIENT
  Age: 82 Year
  Sex: Male

DRUGS (1)
  1. ZYVOX [Suspect]
     Dosage: ZYVOX 600MG BID PO
     Route: 048
     Dates: start: 20100125

REACTIONS (2)
  - BLINDNESS TRANSIENT [None]
  - VISUAL ACUITY REDUCED [None]
